FAERS Safety Report 12645580 (Version 1)
Quarter: 2016Q3

REPORT INFORMATION
  Report Type: Report from Study
  Country: US (occurrence: US)
  Receive Date: 20160811
  Receipt Date: 20160811
  Transmission Date: 20161109
  Serious: Yes (Other)
  Sender: FDA-Public Use
  Company Number: US-EISAI MEDICAL RESEARCH-EC-2016-019307

PATIENT
  Age: 80 Year
  Sex: Male
  Weight: 74 kg

DRUGS (2)
  1. LORCASERIN [Suspect]
     Active Substance: LORCASERIN HYDROCHLORIDE
     Indication: WEIGHT CONTROL
     Route: 048
     Dates: start: 20141017, end: 20160810
  2. METFORMIN [Concomitant]
     Active Substance: METFORMIN HYDROCHLORIDE
     Route: 048
     Dates: start: 1987

REACTIONS (1)
  - Adenocarcinoma pancreas [Not Recovered/Not Resolved]

NARRATIVE: CASE EVENT DATE: 20160706
